FAERS Safety Report 9924825 (Version 1)
Quarter: 2014Q1

REPORT INFORMATION
  Report Type: Spontaneous
  Country: US (occurrence: None)
  Receive Date: 20140221
  Receipt Date: 20140221
  Transmission Date: 20141002
  Serious: Yes (Other)
  Sender: FDA-Public Use
  Company Number: 001640654A

PATIENT
  Age: 42 Year
  Sex: Female

DRUGS (4)
  1. MEANINGFUL BEAUTY ANTIOXIDANT DAY CREME SPF 20 [Suspect]
     Dosage: ONCE DERMAL
     Dates: start: 20131202
  2. ANTIHYPERTENSIVE [Concomitant]
  3. DIABETIC MEDICATION [Concomitant]
  4. EPIPEN [Concomitant]

REACTIONS (2)
  - Urticaria [None]
  - Dyspnoea [None]
